FAERS Safety Report 17762216 (Version 1)
Quarter: 2020Q2

REPORT INFORMATION
  Report Type: Spontaneous
  Country: US (occurrence: US)
  Receive Date: 20200508
  Receipt Date: 20200508
  Transmission Date: 20200714
  Serious: No
  Sender: FDA-Public Use
  Company Number: US-ASTRAZENECA-2020SE60916

PATIENT
  Age: 81 Year
  Sex: Male

DRUGS (1)
  1. ZOMIG [Suspect]
     Active Substance: ZOLMITRIPTAN
     Indication: ANALGESIC THERAPY
     Dosage: LIMITED TO TWICE WEEKLY
     Route: 065

REACTIONS (1)
  - Rebound effect [Unknown]
